FAERS Safety Report 6944530-7 (Version None)
Quarter: 2010Q3

REPORT INFORMATION
  Report Type: 
  Country: None (occurrence: None)
  Receive Date: 20100827
  Receipt Date: 20100818
  Transmission Date: 20110219
  Serious: Yes (Other)
  Sender: FDA-Public Use
  Company Number: US-JNJFOC-20100806560

PATIENT
  Sex: Female

DRUGS (2)
  1. MONISTAT [Suspect]
     Route: 067
  2. MONISTAT [Suspect]
     Indication: FUNGAL INFECTION
     Route: 067

REACTIONS (3)
  - DRUG EXPOSURE DURING PREGNANCY [None]
  - PLACENTA PRAEVIA [None]
  - URTICARIA [None]
